FAERS Safety Report 17835846 (Version 5)
Quarter: 2020Q2

REPORT INFORMATION
  Report Type: Report from Study
  Country: US (occurrence: US)
  Receive Date: 20200528
  Receipt Date: 20200630
  Transmission Date: 20200714
  Serious: Yes (Death)
  Sender: FDA-Public Use
  Company Number: US-ROCHE-2610679

PATIENT
  Age: 56 Year
  Sex: Female
  Weight: 113.4 kg

DRUGS (7)
  1. TOCILIZUMAB. [Suspect]
     Active Substance: TOCILIZUMAB
     Indication: COVID-19 PNEUMONIA
     Dosage: THE DATE OF LAST DOSE OF TOCILIZUMAB PRIOR TO ADVERSE EVENT: 14/MAY/2020.
     Route: 042
     Dates: start: 20200514
  2. VANCOMYCIN [Concomitant]
     Active Substance: VANCOMYCIN
     Dosage: BROAD COVERAGE
     Route: 065
     Dates: start: 20200514, end: 20200514
  3. ENOXAPARIN [Concomitant]
     Active Substance: ENOXAPARIN
     Indication: THROMBOSIS PROPHYLAXIS
     Dosage: ANTICOAGULATION
     Route: 065
     Dates: start: 20200514, end: 20200520
  4. PANTOPRAZOLE [Concomitant]
     Active Substance: PANTOPRAZOLE
     Indication: GASTROOESOPHAGEAL REFLUX DISEASE
     Route: 065
     Dates: start: 20200514, end: 20200518
  5. CEFEPIME [Concomitant]
     Active Substance: CEFEPIME HYDROCHLORIDE
     Dosage: BROAD COVERAGE
     Route: 065
     Dates: start: 20200514, end: 20200514
  6. ALBUTEROL [SALBUTAMOL] [Concomitant]
     Active Substance: ALBUTEROL
     Indication: ASTHMA
     Route: 065
     Dates: start: 20200514, end: 20200518
  7. ERTAPENEM. [Concomitant]
     Active Substance: ERTAPENEM SODIUM
     Dosage: BROAD COVERAGE
     Route: 065
     Dates: start: 20200514, end: 20200514

REACTIONS (1)
  - Septic shock [Fatal]

NARRATIVE: CASE EVENT DATE: 20200515
